FAERS Safety Report 7002117-4 (Version None)
Quarter: 2010Q3

REPORT INFORMATION
  Report Type: 
  Country: None (occurrence: None)
  Receive Date: 20100920
  Receipt Date: 20070522
  Transmission Date: 20110219
  Serious: Yes (Hospitalization, Other)
  Sender: FDA-Public Use
  Company Number: US-ASTRAZENECA-2006UW24165

PATIENT
  Age: 14828 Day
  Sex: Female
  Weight: 89.8 kg

DRUGS (9)
  1. SEROQUEL [Suspect]
     Indication: MENTAL DISORDER
     Route: 048
     Dates: start: 19970101, end: 19990101
  2. SEROQUEL [Suspect]
     Route: 048
     Dates: start: 19980728
  3. RISPERDAL [Suspect]
     Route: 048
     Dates: start: 19980204
  4. ZYPREXA [Suspect]
     Route: 048
     Dates: start: 20021106
  5. HALDOL [Concomitant]
  6. THORAZINE [Concomitant]
  7. PROZAC [Concomitant]
     Route: 048
     Dates: start: 19980728
  8. DEPAKOTE [Concomitant]
     Route: 048
     Dates: start: 19980204
  9. LITHIUM [Concomitant]
     Dosage: 300 MG 3 TABS AT NIGHT
     Route: 048
     Dates: start: 19980204

REACTIONS (9)
  - BLADDER DISORDER [None]
  - BLOOD CHOLESTEROL INCREASED [None]
  - BLOOD TRIGLYCERIDES INCREASED [None]
  - INTERVERTEBRAL DISC DEGENERATION [None]
  - PANCREATITIS [None]
  - PANCREATITIS ACUTE [None]
  - PURULENT DISCHARGE [None]
  - STRESS URINARY INCONTINENCE [None]
  - URINARY TRACT INFECTION [None]
